FAERS Safety Report 14237155 (Version 2)
Quarter: 2018Q1

REPORT INFORMATION
  Report Type: Spontaneous
  Country: US (occurrence: US)
  Receive Date: 20171129
  Receipt Date: 20180224
  Transmission Date: 20180508
  Serious: No
  Sender: FDA-Public Use
  Company Number: US-009507513-1711USA006649

PATIENT
  Age: 16 Year
  Sex: Female
  Weight: 82.09 kg

DRUGS (2)
  1. NEXPLANON [Suspect]
     Active Substance: ETONOGESTREL
     Indication: CONTRACEPTION
     Dosage: ONE ROD, EVERY 3 YEARS
     Route: 058
     Dates: start: 20170830, end: 20180123
  2. NEXPLANON [Suspect]
     Active Substance: ETONOGESTREL
     Dosage: UNK
     Route: 058
     Dates: start: 20180123

REACTIONS (5)
  - Pain [Unknown]
  - Device kink [Recovered/Resolved]
  - Limb discomfort [Not Recovered/Not Resolved]
  - Implant site infection [Recovered/Resolved]
  - Implant site erythema [Recovered/Resolved]

NARRATIVE: CASE EVENT DATE: 2017
